FAERS Safety Report 9621134 (Version 1)
Quarter: 2013Q4

REPORT INFORMATION
  Report Type: Spontaneous
  Country: GB (occurrence: GB)
  Receive Date: 20131015
  Receipt Date: 20131015
  Transmission Date: 20140711
  Serious: Yes (Other)
  Sender: FDA-Public Use
  Company Number: GB-ASTRAZENECA-2013SE74197

PATIENT
  Age: 71 Year
  Sex: Male

DRUGS (23)
  1. MEROPENEM [Suspect]
     Indication: ENDOCARDITIS BACTERIAL
     Route: 042
     Dates: start: 20130814, end: 20130901
  2. VANCOMYCIN [Suspect]
     Indication: ENDOCARDITIS BACTERIAL
     Route: 042
     Dates: start: 20130810
  3. VANCOMYCIN [Suspect]
     Indication: ENDOCARDITIS BACTERIAL
     Route: 042
     Dates: end: 20130901
  4. VANCOMYCIN [Suspect]
     Indication: ENDOCARDITIS BACTERIAL
     Route: 042
  5. AMLODIPINE [Concomitant]
     Indication: HYPERTENSION
     Dates: start: 20130806
  6. BENZYDAMINE HYDROCHLORIDE [Concomitant]
     Indication: ORAL PAIN
     Dates: start: 20130819
  7. CARBOCISTEINE [Concomitant]
     Dates: start: 20130828
  8. CASPOFUNGIN [Concomitant]
     Indication: ENDOCARDITIS
     Dates: start: 20130820, end: 20130826
  9. CHLORPHENAMINE MALEATE [Concomitant]
     Indication: RASH
     Dates: start: 20130827
  10. DEXAMETHASONE [Concomitant]
     Dates: start: 20130822, end: 20130823
  11. ENOXAPARIN [Concomitant]
     Dates: start: 20130802, end: 20130903
  12. FERROUS FUMARATE [Concomitant]
     Indication: IRON DEFICIENCY
     Dates: start: 20130812, end: 20130902
  13. GENTAMICIN [Concomitant]
     Indication: PNEUMONIA ASPIRATION
     Dates: start: 20130805, end: 20130806
  14. GLYCOPYRROLATE [Concomitant]
     Dates: start: 20130822, end: 20130822
  15. HYOSCINE [Concomitant]
     Route: 062
     Dates: start: 20130825
  16. METRONIDAZOLE [Concomitant]
     Dates: start: 20130806, end: 20130812
  17. NORMAL SALINE [Concomitant]
     Dates: start: 20130802
  18. PABRINEX [Concomitant]
     Dates: start: 20130802, end: 20130813
  19. PARACETAMOL [Concomitant]
     Indication: PAIN
     Dates: start: 20130802
  20. PHOSPHATE-SANDOZ [Concomitant]
     Indication: HYPOPHOSPHATAEMIA
     Dates: start: 20130817, end: 20130903
  21. PIPERACILLIN AND TAZOBACTAM [Concomitant]
     Indication: PNEUMONIA ASPIRATION
     Dates: start: 20130802, end: 20130813
  22. SALBUTAMOL [Concomitant]
     Dates: start: 20130904
  23. VORICONAZOLE [Concomitant]
     Indication: ENDOCARDITIS
     Dates: start: 20130828, end: 20130831

REACTIONS (9)
  - Blister [Recovered/Resolved]
  - Emotional distress [Unknown]
  - Petechiae [Recovered/Resolved]
  - Tremor [Unknown]
  - Skin lesion [Recovered/Resolved]
  - Unresponsive to stimuli [Unknown]
  - Rash erythematous [Recovered/Resolved]
  - Rash maculo-papular [Recovered/Resolved]
  - Drug eruption [Recovered/Resolved]
